FAERS Safety Report 6974896-3 (Version None)
Quarter: 2010Q3

REPORT INFORMATION
  Report Type: 
  Country: None (occurrence: None)
  Receive Date: 20100909
  Receipt Date: 20081222
  Transmission Date: 20110219
  Serious: No
  Sender: FDA-Public Use
  Company Number: US-WYE-H07383708

PATIENT
  Sex: Female
  Weight: 61.29 kg

DRUGS (1)
  1. PRISTIQ [Suspect]
     Indication: DEPRESSION
     Route: 048
     Dates: start: 20081212

REACTIONS (4)
  - ABNORMAL DREAMS [None]
  - ANXIETY [None]
  - CONDITION AGGRAVATED [None]
  - FEELING JITTERY [None]
